FAERS Safety Report 7084243-7 (Version None)
Quarter: 2010Q4

REPORT INFORMATION
  Report Type: 
  Country: None (occurrence: None)
  Receive Date: 20101104
  Receipt Date: 20101026
  Transmission Date: 20110411
  Serious: Yes (Disabling, Other)
  Sender: FDA-Public Use
  Company Number: JP-PFIZER INC-2010109687

PATIENT
  Age: 46 Year
  Sex: Male

DRUGS (8)
  1. ZOLOFT [Suspect]
     Indication: DEPRESSION
     Dosage: 25 MG, 1X/DAY
     Route: 048
     Dates: start: 20090213
  2. ZOLOFT [Suspect]
     Dosage: 50 MG, 2X/DAY
     Route: 048
     Dates: start: 20090827, end: 20100831
  3. SILECE [Suspect]
     Indication: INSOMNIA
     Dosage: 1 MG, 1X/DAY
     Route: 048
     Dates: start: 20081118, end: 20100831
  4. DEPAS [Suspect]
     Indication: INSOMNIA
     Dosage: 1 MG, 1X/DAY
     Route: 048
     Dates: start: 20100610, end: 20100831
  5. DEPAS [Suspect]
     Indication: ANXIETY
     Dosage: UNK
     Dates: start: 20100610, end: 20100831
  6. DOGMATYL [Concomitant]
     Indication: DEPRESSION
     Dosage: 50 MG, 3X/DAY
     Route: 048
     Dates: start: 20090702, end: 20100831
  7. SEPAZON [Concomitant]
     Indication: ANXIETY
     Dosage: 1 MG, 3X/DAY
     Route: 048
     Dates: start: 20081118, end: 20100831
  8. MUCOSTA [Concomitant]
     Indication: GASTRITIS
     Dosage: 100 MG, 3X/DAY
     Route: 048
     Dates: start: 20090702, end: 20100831

REACTIONS (5)
  - ALTERED STATE OF CONSCIOUSNESS [None]
  - AMNESIA [None]
  - FALL [None]
  - SKIN LACERATION [None]
  - SOMNAMBULISM [None]
